FAERS Safety Report 12088820 (Version 3)
Quarter: 2016Q1

REPORT INFORMATION
  Report Type: Spontaneous
  Country: IT (occurrence: IT)
  Receive Date: 20160218
  Receipt Date: 20160321
  Transmission Date: 20160526
  Serious: Yes (Hospitalization)
  Sender: FDA-Public Use
  Company Number: PHHY2016IT020637

PATIENT
  Age: 17 Year
  Sex: Female

DRUGS (2)
  1. BREVA [Suspect]
     Active Substance: ALBUTEROL\IPRATROPIUM
     Indication: SELF INJURIOUS BEHAVIOUR
     Dosage: 15 ML, ONCE/SINGLE
     Route: 048
     Dates: start: 20150602, end: 20150602
  2. PARACETAMOL [Suspect]
     Active Substance: ACETAMINOPHEN
     Indication: SELF INJURIOUS BEHAVIOUR
     Dosage: 3500 MG, ONCE/SINGLE
     Route: 048
     Dates: start: 20150602, end: 20150602

REACTIONS (4)
  - Self injurious behaviour [Unknown]
  - Drug abuse [Unknown]
  - Vomiting [Unknown]
  - Toxicity to various agents [Unknown]

NARRATIVE: CASE EVENT DATE: 20150602
